FAERS Safety Report 9841156 (Version 1)
Quarter: 2014Q1

REPORT INFORMATION
  Report Type: Spontaneous
  Country: US (occurrence: None)
  Receive Date: 20140123
  Receipt Date: 20140123
  Transmission Date: 20141002
  Serious: Yes (Hospitalization)
  Sender: FDA-Public Use
  Company Number: None

PATIENT
  Age: 72 Year
  Sex: Male
  Weight: 82.6 kg

DRUGS (13)
  1. RIVAROXABAN [Suspect]
     Indication: ATRIAL FIBRILLATION
     Route: 048
     Dates: start: 20130820
  2. VICODIN [Concomitant]
  3. VITAMIN D3 [Concomitant]
  4. ALENDRONATE [Concomitant]
  5. BACLOFEN [Concomitant]
  6. FOLIC ACID [Concomitant]
  7. GABAPENTIN [Concomitant]
  8. OMEPRAZOLE [Concomitant]
  9. ATORVASTATIN [Concomitant]
  10. TRAMADOL [Concomitant]
  11. METOPROLOL TARTRATE [Concomitant]
  12. GLIPIZIDE [Concomitant]
  13. FUROSEMIDE [Concomitant]

REACTIONS (1)
  - Gastrointestinal haemorrhage [None]
